FAERS Safety Report 25779588 (Version 1)
Quarter: 2025Q3

REPORT INFORMATION
  Report Type: Spontaneous
  Country: US (occurrence: US)
  Receive Date: 20250909
  Receipt Date: 20250909
  Transmission Date: 20251020
  Serious: No
  Sender: MYLAN
  Company Number: US-MYLANLABS-2025M1074256

PATIENT

DRUGS (1)
  1. TYRVAYA [Suspect]
     Active Substance: VARENICLINE TARTRATE
     Indication: Product used for unknown indication
     Dates: start: 20250811, end: 20250819

REACTIONS (7)
  - Rash [Unknown]
  - Pruritus [Unknown]
  - Swelling of nose [Unknown]
  - Headache [Unknown]
  - Feeling hot [Unknown]
  - Hyperaesthesia [Unknown]
  - Sneezing [Unknown]

NARRATIVE: CASE EVENT DATE: 20250811
